FAERS Safety Report 6600892-1 (Version None)
Quarter: 2010Q1

REPORT INFORMATION
  Report Type: 
  Country: None (occurrence: None)
  Receive Date: 20100225
  Receipt Date: 20100120
  Transmission Date: 20100710
  Serious: No
  Sender: FDA-Public Use
  Company Number: A0840762A

PATIENT
  Sex: Female

DRUGS (2)
  1. LAMICTAL CD [Suspect]
     Indication: DRUG USE FOR UNKNOWN INDICATION
     Route: 065
  2. ANTI-MALARIAL DRUG (UNSPECIFIED) [Concomitant]

REACTIONS (3)
  - HYPERSENSITIVITY [None]
  - MENTAL DISORDER [None]
  - RASH [None]
